FAERS Safety Report 11052386 (Version 1)
Quarter: 2015Q2

REPORT INFORMATION
  Report Type: Spontaneous
  Country: US (occurrence: None)
  Receive Date: 20150420
  Receipt Date: 20150420
  Transmission Date: 20150821
  Serious: No
  Sender: FDA-Public Use
  Company Number: None

PATIENT
  Age: 52 Year
  Sex: Female
  Weight: 73.1 kg

DRUGS (1)
  1. FLUTICASONE/SALMETEROL [Suspect]
     Active Substance: FLUTICASONE PROPIONATE\SALMETEROL XINAFOATE
     Dosage: 500/50 MCG, BID, INHALE
     Route: 055
     Dates: start: 20140903, end: 20141024

REACTIONS (2)
  - Face oedema [None]
  - Periorbital oedema [None]

NARRATIVE: CASE EVENT DATE: 20141024
